FAERS Safety Report 8979577 (Version 1)
Quarter: 2012Q4

REPORT INFORMATION
  Report Type: 
  Country: IT (occurrence: IT)
  Receive Date: 20121221
  Receipt Date: 20121221
  Transmission Date: 20130627
  Serious: Yes (Death, Other)
  Sender: FDA-Public Use
  Company Number: PHHY2012IT117428

PATIENT
  Age: 53 Year
  Sex: Female

DRUGS (1)
  1. ZOMETA [Suspect]
     Indication: BREAST CANCER STAGE IV
     Dosage: 4 mg,monthly
     Route: 042
     Dates: start: 20051208, end: 20070701

REACTIONS (2)
  - Breast cancer [Fatal]
  - Osteonecrosis of jaw [Unknown]
